FAERS Safety Report 8617979-4 (Version None)
Quarter: 2012Q3

REPORT INFORMATION
  Report Type: 
  Country: None (occurrence: None)
  Receive Date: 20120824
  Receipt Date: 20120125
  Transmission Date: 20120928
  Serious: No
  Sender: FDA-Public Use
  Company Number: US-ASTRAZENECA-2012SE05352

PATIENT
  Age: 67 Year
  Sex: Male

DRUGS (14)
  1. LISINOPRIL [Concomitant]
  2. POTASSIUM [Concomitant]
  3. AMITRIPTYLINE HCL [Concomitant]
  4. CITALOPRAM HYDROBROMIDE [Concomitant]
  5. GEMFIBROZIL [Concomitant]
  6. MORPHINE [Concomitant]
  7. CARBAMAZEPINE [Concomitant]
  8. HUMAN INSULIN [Concomitant]
  9. TRAZODONE HYDROCHLORIDE [Concomitant]
  10. FUROSEMIDE [Concomitant]
  11. HYDROCODONE BITARTRATE [Concomitant]
  12. RISPERIDONE [Concomitant]
  13. SYMBICORT [Suspect]
     Indication: CHRONIC OBSTRUCTIVE PULMONARY DISEASE
     Dosage: 2 PUFFS, TWO TIMES A DAY
     Route: 055
     Dates: start: 20111201, end: 20120124
  14. OMEPRAZOLE [Concomitant]

REACTIONS (10)
  - DYSPNOEA [None]
  - NASAL CONGESTION [None]
  - DYSPHAGIA [None]
  - COUGH [None]
  - LOCAL SWELLING [None]
  - OROPHARYNGEAL PAIN [None]
  - ORAL PAIN [None]
  - SWOLLEN TONGUE [None]
  - DYSPHONIA [None]
  - ORAL CANDIDIASIS [None]
